FAERS Safety Report 6473296-2 (Version None)
Quarter: 2009Q4

REPORT INFORMATION
  Report Type: 
  Country: None (occurrence: None)
  Receive Date: 20091204
  Receipt Date: 20080818
  Transmission Date: 20100525
  Serious: Yes (Hospitalization)
  Sender: FDA-Public Use
  Company Number: FR-ELI_LILLY_AND_COMPANY-FR200806006058

PATIENT
  Sex: Female
  Weight: 97 kg

DRUGS (9)
  1. BYETTA [Suspect]
     Indication: DIABETES MELLITUS
     Dosage: 5 UG, 2/D
     Route: 058
     Dates: start: 20080412, end: 20080605
  2. METFORMIN HCL [Concomitant]
     Indication: TYPE 2 DIABETES MELLITUS
     Dosage: 3 G, DAILY (1/D)
     Route: 048
  3. DAONIL [Concomitant]
     Indication: TYPE 2 DIABETES MELLITUS
     Dosage: 15 MG, DAILY (1/D)
     Route: 048
  4. LEVOTHYROXINE SODIUM [Concomitant]
     Indication: THYROID CANCER
     Dosage: 150 UG, DAILY (1/D)
     Route: 048
     Dates: start: 19940101
  5. VALSARTAN AND HYDROCHLOROTHIAZIDE [Concomitant]
     Dosage: UNK, UNKNOWN
     Route: 048
  6. SEROPRAM [Concomitant]
     Indication: DEPRESSION
     Dosage: 40 MG, DAILY (1/D)
     Route: 048
  7. TRANXEN [Concomitant]
     Indication: DEPRESSION
     Dosage: 5 MG, DAILY (1/D)
     Route: 048
  8. TAHOR [Concomitant]
     Indication: HYPERCHOLESTEROLAEMIA
     Dosage: 20 MG, UNKNOWN
     Route: 048
  9. TINSET [Concomitant]
     Indication: HYPERSENSITIVITY
     Dosage: 30 MG, UNKNOWN
     Route: 048

REACTIONS (4)
  - LICHENOID KERATOSIS [None]
  - NAUSEA [None]
  - SKIN HYPERPIGMENTATION [None]
  - VOMITING [None]
